FAERS Safety Report 8415029-6 (Version None)
Quarter: 2012Q2

REPORT INFORMATION
  Report Type: 
  Country: None (occurrence: None)
  Receive Date: 20120606
  Receipt Date: 20120525
  Transmission Date: 20120825
  Serious: Yes (Other)
  Sender: FDA-Public Use
  Company Number: CA-JNJFOC-20120519591

PATIENT
  Sex: Male
  Weight: 76 kg

DRUGS (2)
  1. CREATINE [Concomitant]
     Route: 065
  2. REMICADE [Suspect]
     Indication: COLITIS ULCERATIVE
     Route: 042
     Dates: start: 20091001

REACTIONS (2)
  - NECK PAIN [None]
  - COLITIS ULCERATIVE [None]
